FAERS Safety Report 5396650-9 (Version None)
Quarter: 2007Q3

REPORT INFORMATION
  Report Type: 
  Country: None (occurrence: None)
  Receive Date: 20070725
  Receipt Date: 20070718
  Transmission Date: 20080115
  Serious: Yes (Hospitalization, Other)
  Sender: FDA-Public Use
  Company Number: B0472530A

PATIENT
  Age: 72 Year
  Sex: Male

DRUGS (3)
  1. AUGMENTIN '125' [Suspect]
     Indication: PROPHYLAXIS
     Dosage: 875MG PER DAY
     Dates: start: 20040416
  2. NIFEDIPINE [Concomitant]
  3. SOTALOL HYDROCHLORIDE [Concomitant]

REACTIONS (7)
  - BLOOD ALKALINE PHOSPHATASE INCREASED [None]
  - GAMMA-GLUTAMYLTRANSFERASE INCREASED [None]
  - HEPATITIS [None]
  - INSOMNIA [None]
  - JAUNDICE CHOLESTATIC [None]
  - PRURITUS [None]
  - WEIGHT DECREASED [None]
